FAERS Safety Report 10012994 (Version 1)
Quarter: 2014Q1

REPORT INFORMATION
  Report Type: Spontaneous
  Country: US (occurrence: US)
  Receive Date: 20140314
  Receipt Date: 20140314
  Transmission Date: 20141002
  Serious: No
  Sender: FDA-Public Use
  Company Number: US-PFIZER INC-2014070659

PATIENT
  Sex: Female

DRUGS (1)
  1. ADVIL MIGRAINE [Suspect]
     Indication: MIGRAINE
     Dosage: 200 MG, ONCE
     Route: 048
     Dates: start: 20140310, end: 20140310

REACTIONS (3)
  - Oral discomfort [Unknown]
  - Glossodynia [Unknown]
  - Pruritus generalised [Unknown]
